FAERS Safety Report 7944794-7 (Version None)
Quarter: 2011Q4

REPORT INFORMATION
  Report Type: 
  Country: None (occurrence: None)
  Receive Date: 20111129
  Receipt Date: 20111121
  Transmission Date: 20120403
  Serious: Yes (Hospitalization)
  Sender: FDA-Public Use
  Company Number: US-BRISTOL-MYERS SQUIBB COMPANY-16241846

PATIENT
  Age: 83 Year
  Sex: Female
  Weight: 79 kg

DRUGS (10)
  1. ATENOLOL [Concomitant]
  2. DETROL LA [Concomitant]
  3. PRAVASTATIN SODIUM [Suspect]
  4. PLAVIX [Suspect]
     Dosage: BOTTLE INTER ON MAY2008 RESTARTED
     Route: 048
     Dates: start: 20080101
  5. CALCITONIN SALMON [Concomitant]
  6. ISOSORBIDE DINITRATE [Concomitant]
  7. ASPIRIN [Concomitant]
     Dosage: FOR COUPLE OF MONTHS
  8. VITAMIN D [Concomitant]
  9. NEXIUM [Concomitant]
  10. OSCAL [Concomitant]

REACTIONS (1)
  - ARTERIAL OCCLUSIVE DISEASE [None]
